FAERS Safety Report 9164531 (Version 1)
Quarter: 2013Q1

REPORT INFORMATION
  Report Type: Spontaneous
  Country: NL (occurrence: None)
  Receive Date: 20130226
  Receipt Date: 20130226
  Transmission Date: 20140127
  Serious: Yes (Hospitalization)
  Sender: FDA-Public Use
  Company Number: SYM-2013-00854

PATIENT
  Age: 78 Year
  Sex: Male

DRUGS (10)
  1. FLUOROURACIL (FLUOROURACIL) [Suspect]
     Indication: COLORECTAL CANCER METASTATIC
     Route: 040
     Dates: start: 20130122, end: 20130122
  2. AFLIBERCEPT (AFLIBERCEPT) SOLUTION FOR INJECTION [Suspect]
     Dosage: 320 MG, INTRAVENOUS (NOT OTHERWISE SPECIFIED)
     Route: 042
     Dates: start: 20130122, end: 20130122
  3. IRINOTECAN (IRINOTECAN) [Suspect]
     Dosage: 350 MG, INTRAVENOUS (NOT OTHERWISE SPECIFIED)
     Route: 042
     Dates: start: 20130122, end: 20130122
  4. LEUCOVORIN (FOLINIC ACID) (FOLINIC ACID) [Suspect]
     Dosage: 400 MG, INTRAVENOUS (NOT OTHERWISE SPECIFIED)
     Route: 042
     Dates: start: 20130122, end: 20130122
  5. ANTIHYPERTENSIVE (ANTIHYPERTENSIVES) [Concomitant]
  6. ORAL ANTIDIABETICS (ORAL ANTIDIABETICS) [Concomitant]
  7. HYPNOTICS AND SEDATIVES (HYPNOTICS AND SEDATIVES) [Concomitant]
  8. ANITHISTAMINES (ANITHISTAMINES) [Concomitant]
  9. SEROTONIN ANTAGONISTS (SEROTONIS ANTAGONISTS) [Concomitant]
  10. ALL OTHER THERAPEUTIC PRODUCTS (ALL OTHER THERAPEUTIC PRODUCTS) [Concomitant]

REACTIONS (1)
  - Rectal haemorrhage [None]
